FAERS Safety Report 5607495-6 (Version None)
Quarter: 2008Q1

REPORT INFORMATION
  Report Type: 
  Country: None (occurrence: None)
  Receive Date: 20080125
  Receipt Date: 20080115
  Transmission Date: 20080703
  Serious: Yes (Hospitalization)
  Sender: FDA-Public Use
  Company Number: 2007BI024261

PATIENT
  Age: 42 Year
  Sex: Female
  Weight: 61.2356 kg

DRUGS (6)
  1. TYSABRI [Suspect]
     Indication: MULTIPLE SCLEROSIS
     Dosage: 300 MG; QM; IV
     Route: 042
     Dates: start: 20070801
  2. NEOSPORIN [Concomitant]
  3. SODIUM CHLORIDE INJ [Concomitant]
  4. DETROL [Concomitant]
  5. POTASSIUM CHLORIDE [Concomitant]
  6. LACTULOSE [Concomitant]

REACTIONS (2)
  - ANKLE FRACTURE [None]
  - FALL [None]
